FAERS Safety Report 6080216-1 (Version None)
Quarter: 2009Q1

REPORT INFORMATION
  Report Type: 
  Country: None (occurrence: None)
  Receive Date: 20090212
  Receipt Date: 20090202
  Transmission Date: 20090719
  Serious: Yes (Other)
  Sender: FDA-Public Use
  Company Number: GXKR2009IT01418

PATIENT
  Age: 7 Year
  Sex: Female

DRUGS (2)
  1. SOMATROPIN (NGX) (SOMATROPIN) [Suspect]
     Indication: HORMONE REPLACEMENT THERAPY
     Dosage: 5 MG, QW, 3 MG, QW
     Dates: start: 20040201, end: 20040601
  2. SOMATROPIN (NGX) (SOMATROPIN) [Suspect]
     Indication: HORMONE REPLACEMENT THERAPY
     Dosage: 5 MG, QW, 3 MG, QW
     Dates: start: 20050301

REACTIONS (4)
  - BRAIN OEDEMA [None]
  - HEADACHE [None]
  - INFLAMMATION [None]
  - VISUAL IMPAIRMENT [None]
